FAERS Safety Report 9798417 (Version 1)
Quarter: 2013Q4

REPORT INFORMATION
  Report Type: Spontaneous
  Country: QA (occurrence: None)
  Receive Date: 20131231
  Receipt Date: 20131231
  Transmission Date: 20140711
  Serious: Yes (Hospitalization)
  Sender: FDA-Public Use
  Company Number: 2013P1022165

PATIENT
  Age: 42 Year
  Sex: Male

DRUGS (10)
  1. LEVETIRACETAM [Suspect]
     Indication: EPILEPSY
     Route: 048
     Dates: start: 20121005, end: 201210
  2. LEVETIRACETAM [Suspect]
     Indication: PROPHYLAXIS
     Route: 048
     Dates: start: 20121005, end: 201210
  3. PHENYTOIN [Suspect]
     Indication: EPILEPSY
     Route: 048
     Dates: start: 20120828, end: 20121005
  4. PHENYTOIN [Suspect]
     Indication: PROPHYLAXIS
     Route: 048
     Dates: start: 20120828, end: 20121005
  5. TEMOZOLOMIDE [Concomitant]
  6. DEXAMETHASONE [Concomitant]
  7. SULFAMETHOXAZOLE AND TRIMETHOPRIM [Concomitant]
  8. ASPIRIN [Concomitant]
  9. ATORVASTATIN [Concomitant]
  10. ENALAPRIL [Concomitant]

REACTIONS (1)
  - Toxic epidermal necrolysis [None]
